FAERS Safety Report 23706603 (Version 1)
Quarter: 2024Q2

REPORT INFORMATION
  Report Type: Spontaneous
  Country: US (occurrence: None)
  Receive Date: 20240403
  Receipt Date: 20240403
  Transmission Date: 20240716
  Serious: No
  Sender: FDA-Public Use
  Company Number: None

PATIENT
  Age: 35 Year
  Sex: Female

DRUGS (1)
  1. OPSUMIT [Suspect]
     Active Substance: MACITENTAN
     Indication: Pulmonary hypertension
     Dosage: FREQUENCY : DAILY;?
     Route: 048
     Dates: start: 20200224

REACTIONS (5)
  - Clostridium test positive [None]
  - Pancytopenia [None]
  - Thrombocytopenia [None]
  - Coagulopathy [None]
  - Hepatic cirrhosis [None]

NARRATIVE: CASE EVENT DATE: 20240325
